FAERS Safety Report 8237320-9 (Version None)
Quarter: 2012Q1

REPORT INFORMATION
  Report Type: 
  Country: None (occurrence: None)
  Receive Date: 20120327
  Receipt Date: 20120319
  Transmission Date: 20120608
  Serious: Yes (Other)
  Sender: FDA-Public Use
  Company Number: US-BAYER-2011-085640

PATIENT
  Age: 39 Year
  Sex: Female
  Weight: 76.19 kg

DRUGS (7)
  1. KETOROLAC TROMETHAMINE [Concomitant]
     Dosage: 10 MG, UNK
  2. FAMOTIDINE [Concomitant]
     Dosage: 20 MG, UNK
  3. ANAPROX DS [Concomitant]
     Dosage: UNK
     Dates: start: 20090713
  4. AMINO ACID INJ [Concomitant]
     Dosage: UNK UNK, OW
  5. YAZ [Suspect]
     Indication: ACNE
     Dosage: UNK
     Dates: start: 20090301, end: 20090801
  6. TERFAMEX [Concomitant]
     Indication: MEDICAL DIET
  7. TORADOL [Concomitant]
     Indication: PAIN
     Dosage: 10 MG, QID
     Route: 048
     Dates: start: 20090618

REACTIONS (10)
  - CONSTIPATION [None]
  - FLATULENCE [None]
  - DIARRHOEA [None]
  - SCAR [None]
  - DEPRESSION [None]
  - CHOLECYSTECTOMY [None]
  - DYSPEPSIA [None]
  - ABDOMINAL DISTENSION [None]
  - ANXIETY [None]
  - CHOLECYSTITIS CHRONIC [None]
